FAERS Safety Report 7002361-6 (Version None)
Quarter: 2010Q3

REPORT INFORMATION
  Report Type: 
  Country: None (occurrence: None)
  Receive Date: 20100920
  Receipt Date: 20090724
  Transmission Date: 20110219
  Serious: No
  Sender: FDA-Public Use
  Company Number: US-ASTRAZENECA-2009UW11950

PATIENT
  Age: 16888 Day
  Sex: Female
  Weight: 86.2 kg

DRUGS (5)
  1. SEROQUEL [Suspect]
     Indication: ANXIETY
     Dosage: 25 MG TO 400 MG
     Route: 048
     Dates: start: 20020101, end: 20060801
  2. SEROQUEL [Suspect]
     Indication: DEPRESSION
     Dosage: 25 MG TO 400 MG
     Route: 048
     Dates: start: 20020101, end: 20060801
  3. SEROQUEL [Suspect]
     Indication: SCHIZOPHRENIA
     Dosage: 25 MG TO 400 MG
     Route: 048
     Dates: start: 20020101, end: 20060801
  4. ZYPREXA [Concomitant]
     Dates: start: 20011024, end: 20060201
  5. HALDOL [Concomitant]
     Dates: start: 20010101

REACTIONS (3)
  - BLOOD CHOLESTEROL INCREASED [None]
  - DIABETES MELLITUS [None]
  - OBESITY [None]
